FAERS Safety Report 9093287 (Version 1)
Quarter: 2013Q1

REPORT INFORMATION
  Report Type: Spontaneous
  Country: GR (occurrence: GR)
  Receive Date: 20130201
  Receipt Date: 20130201
  Transmission Date: 20140127
  Serious: Yes (Hospitalization)
  Sender: FDA-Public Use
  Company Number: PHHY2013GR007628

PATIENT
  Age: 53 Year
  Sex: Female

DRUGS (2)
  1. GILENYA [Suspect]
     Dosage: UNK
     Dates: start: 20111108
  2. GILENYA [Suspect]
     Dosage: UNK

REACTIONS (1)
  - Cerebrovascular accident [Recovering/Resolving]
